FAERS Safety Report 5053846-3 (Version None)
Quarter: 2006Q3

REPORT INFORMATION
  Report Type: 
  Country: None (occurrence: None)
  Receive Date: 20060718
  Receipt Date: 20060713
  Transmission Date: 20061208
  Serious: Yes (Hospitalization)
  Sender: FDA-Public Use
  Company Number: JP-JPN-A200602623

PATIENT
  Age: 25 Year
  Sex: Male

DRUGS (18)
  1. PAXIL [Suspect]
     Indication: DEPRESSION
     Route: 048
     Dates: start: 20060525
  2. MEILAX [Concomitant]
     Dosage: 1MG PER DAY
     Route: 048
     Dates: start: 20060525, end: 20060602
  3. TOLEDOMIN [Concomitant]
     Dosage: .25MG PER DAY
     Route: 048
     Dates: start: 20060525, end: 20060602
  4. LORAZEPAM [Concomitant]
     Route: 048
     Dates: start: 20060525, end: 20060602
  5. LORAZEPAM [Concomitant]
     Route: 048
     Dates: start: 20060620, end: 20060626
  6. LORAZEPAM [Concomitant]
     Route: 048
     Dates: start: 20060627, end: 20060711
  7. RHYTHMY [Concomitant]
     Dosage: 2MG PER DAY
     Route: 048
     Dates: start: 20060603, end: 20060612
  8. RHYTHMY [Concomitant]
     Dosage: 2MG PER DAY
     Route: 048
     Dates: start: 20060710
  9. DESYREL [Concomitant]
     Dosage: 25MG PER DAY
     Route: 048
     Dates: start: 20060603, end: 20060612
  10. DEPAS [Concomitant]
     Dosage: .5MG THREE TIMES PER DAY
     Route: 048
     Dates: start: 20060603, end: 20060612
  11. DEPAS [Concomitant]
     Route: 048
     Dates: start: 20060603, end: 20060619
  12. DEPAS [Concomitant]
     Dosage: .5MG THREE TIMES PER DAY
     Route: 048
     Dates: start: 20060620, end: 20060626
  13. DOGMATYL [Concomitant]
     Dosage: 50MG THREE TIMES PER DAY
     Route: 065
     Dates: start: 20060603, end: 20060612
  14. HOCHU-EKKI-TO [Concomitant]
     Dosage: 2.5G THREE TIMES PER DAY
     Route: 048
     Dates: start: 20060603, end: 20060619
  15. AMOBAN [Concomitant]
     Dosage: 7.5MG PER DAY
     Route: 048
     Dates: start: 20060613
  16. CERCINE [Concomitant]
     Dosage: 2MG PER DAY
     Route: 065
     Dates: start: 20060613, end: 20060619
  17. CERCINE [Concomitant]
     Dosage: 2MG PER DAY
     Route: 065
     Dates: start: 20060710, end: 20060711
  18. LULLAN [Concomitant]
     Dosage: 4MG TWICE PER DAY
     Route: 048
     Dates: start: 20060627, end: 20060711

REACTIONS (4)
  - IMPULSIVE BEHAVIOUR [None]
  - INAPPROPRIATE SCHEDULE OF DRUG ADMINISTRATION [None]
  - IRRITABILITY [None]
  - SUICIDAL IDEATION [None]
